FAERS Safety Report 7563792-9 (Version None)
Quarter: 2011Q2

REPORT INFORMATION
  Report Type: 
  Country: None (occurrence: None)
  Receive Date: 20110615
  Receipt Date: 20110531
  Transmission Date: 20111010
  Serious: No
  Sender: FDA-Public Use
  Company Number: JHP201100193

PATIENT
  Age: 32 Year
  Sex: Female
  Weight: 140 kg

DRUGS (8)
  1. HARTMANNS (CALCIUM CHLORIDE ANHYDROUS, POTASSIUM CHLORIDE, SODIUM LACT [Suspect]
  2. PITOCIN [Suspect]
     Dosage: 5 UNITS, BOLUS, INTRAVENOUS; 25 UNITS, BOLUS, INTRAVENOUS
     Route: 040
  3. SUCCINYLCHOLINE CHLORIDE [Concomitant]
  4. CARBETOCIN (CARBETOCIN) [Concomitant]
  5. MIDAZOLAM HYDROCHLORIDE [Concomitant]
  6. VECURONIUM (VECURONIUM) [Concomitant]
  7. THIOPENTAL (THIOPENTAL SODIUM) [Concomitant]
  8. SEVOFLURANE [Concomitant]

REACTIONS (11)
  - WATER INTOXICATION [None]
  - ACCIDENTAL OVERDOSE [None]
  - HEART RATE INCREASED [None]
  - DELAYED RECOVERY FROM ANAESTHESIA [None]
  - ANAESTHETIC COMPLICATION NEUROLOGICAL [None]
  - AGITATION POSTOPERATIVE [None]
  - HYPOTENSION [None]
  - PROCEDURAL NAUSEA [None]
  - BLOOD GASES ABNORMAL [None]
  - OXYGEN SATURATION DECREASED [None]
  - BLOOD SODIUM DECREASED [None]
